FAERS Safety Report 6984141-0 (Version None)
Quarter: 2010Q3

REPORT INFORMATION
  Report Type: 
  Country: None (occurrence: None)
  Receive Date: 20100915
  Receipt Date: 20090629
  Transmission Date: 20110219
  Serious: No
  Sender: FDA-Public Use
  Company Number: US-WYE-H09408909

PATIENT
  Age: 84 Year
  Sex: Female
  Weight: 63.11 kg

DRUGS (3)
  1. ADVIL LIQUI-GELS [Suspect]
     Indication: POST PROCEDURAL DISCOMFORT
     Dosage: 3 LIQUI-GELS TWICE PER DAY
     Route: 048
     Dates: start: 20090201, end: 20090401
  2. ADVIL LIQUI-GELS [Suspect]
     Dosage: 2 LIQUI-GELS TWICE PER DAY
     Route: 048
     Dates: start: 20090401, end: 20090401
  3. ADVIL LIQUI-GELS [Suspect]
     Dosage: 3 LIQUI-GELS TWICE PER DAY
     Route: 048
     Dates: start: 20090401

REACTIONS (4)
  - CONDITION AGGRAVATED [None]
  - DRUG EFFECT DECREASED [None]
  - HYPERTENSION [None]
  - INCORRECT DOSE ADMINISTERED [None]
